FAERS Safety Report 8563697-0 (Version None)
Quarter: 2012Q3

REPORT INFORMATION
  Report Type: 
  Country: None (occurrence: None)
  Receive Date: 20120803
  Receipt Date: 20120730
  Transmission Date: 20120928
  Serious: No
  Sender: FDA-Public Use
  Company Number: US-BIOGENIDEC-2012BI028139

PATIENT
  Age: 43 Year
  Sex: Male

DRUGS (2)
  1. AVONEX [Concomitant]
     Indication: MULTIPLE SCLEROSIS
     Route: 030
     Dates: start: 20110613, end: 20110623
  2. TYSABRI [Suspect]
     Indication: MULTIPLE SCLEROSIS
     Route: 042
     Dates: start: 20110916

REACTIONS (5)
  - HEADACHE [None]
  - DIZZINESS [None]
  - HERPES ZOSTER [None]
  - PAIN [None]
  - CONFUSIONAL STATE [None]
